FAERS Safety Report 9922234 (Version 6)
Quarter: 2014Q2

REPORT INFORMATION
  Report Type: Spontaneous
  Country: US (occurrence: US)
  Receive Date: 20140225
  Receipt Date: 20140509
  Transmission Date: 20141212
  Serious: Yes (Hospitalization, Other)
  Sender: FDA-Public Use
  Company Number: US-ACTELION-A-US2014-95124

PATIENT
  Age: 67 Year
  Sex: Female

DRUGS (11)
  1. OPSUMIT [Suspect]
     Indication: PULMONARY ARTERIAL HYPERTENSION
     Dosage: 10 MG, QD
     Route: 048
     Dates: start: 20140114
  2. OPSUMIT [Suspect]
     Dosage: 10 MG, QD
     Route: 048
     Dates: start: 20140218
  3. COUMADIN [Concomitant]
  4. ADCIRCA [Concomitant]
  5. ALLERGAN [Concomitant]
  6. FLONASE [Concomitant]
  7. LASIX [Concomitant]
  8. SPIRONOLACTONE [Concomitant]
  9. VALTREX [Concomitant]
  10. TYLENOL [Concomitant]
  11. PAXIL [Concomitant]

REACTIONS (15)
  - Pulmonary oedema [Recovered/Resolved]
  - Scleroderma [Unknown]
  - Herpes virus infection [Recovered/Resolved]
  - Oral herpes [Recovered/Resolved]
  - Lip swelling [Recovered/Resolved]
  - Cardiac failure congestive [Recovered/Resolved]
  - Fluid overload [Recovered/Resolved]
  - Condition aggravated [Recovered/Resolved]
  - Upper respiratory tract infection [Recovered/Resolved]
  - Dyspnoea [Unknown]
  - Chest pain [Recovered/Resolved]
  - Oxygen saturation decreased [Recovered/Resolved]
  - Hypotension [Recovered/Resolved]
  - Hypersensitivity [Unknown]
  - Malaise [Unknown]
